FAERS Safety Report 5189986-8 (Version None)
Quarter: 2006Q4

REPORT INFORMATION
  Report Type: 
  Country: None (occurrence: None)
  Receive Date: 20061218
  Receipt Date: 20061205
  Transmission Date: 20070319
  Serious: Yes (Hospitalization)
  Sender: FDA-Public Use
  Company Number: MEDI-0004381

PATIENT
  Age: 22 Month
  Weight: 12 kg

DRUGS (1)
  1. SYNAGIS [Suspect]
     Indication: ANTIVIRAL PROPHYLAXIS
     Dosage: 180 MG, 1 IN 30 D, INTRAMUSCULAR
     Route: 030
     Dates: start: 20051026, end: 20051223

REACTIONS (1)
  - LUNG DISORDER [None]
